FAERS Safety Report 4473139-2 (Version None)
Quarter: 2004Q4

REPORT INFORMATION
  Report Type: 
  Country: None (occurrence: None)
  Receive Date: 20041008
  Receipt Date: 20040903
  Transmission Date: 20050328
  Serious: No
  Sender: FDA-Public Use
  Company Number: 1314819-2004-00016

PATIENT
  Age: 23 Year
  Sex: Female
  Weight: 54 kg

DRUGS (1)
  1. CLINDOXYL GEL [Suspect]
     Indication: ACNE
     Dosage: BID ; 060
     Dates: start: 20040824, end: 20040825

REACTIONS (1)
  - DERMATITIS CONTACT [None]
